FAERS Safety Report 7258714-4 (Version None)
Quarter: 2011Q1

REPORT INFORMATION
  Report Type: 
  Country: None (occurrence: None)
  Receive Date: 20110129
  Receipt Date: 20100505
  Transmission Date: 20110831
  Serious: No
  Sender: FDA-Public Use
  Company Number: US-ABBOTT-10P-163-0643121-00

PATIENT
  Age: 36 Year
  Sex: Female

DRUGS (3)
  1. PENTASA [Concomitant]
     Indication: PRODUCT USED FOR UNKNOWN INDICATION
     Dosage: 500MG 8 TABLETS
  2. HUMIRA [Suspect]
     Indication: CROHN'S DISEASE
     Dates: start: 20100326
  3. PREDNISONE [Concomitant]
     Indication: PRODUCT USED FOR UNKNOWN INDICATION

REACTIONS (3)
  - SENSITIVITY OF TEETH [None]
  - ALOPECIA [None]
  - PAIN [None]
